FAERS Safety Report 15308643 (Version 1)
Quarter: 2018Q3

REPORT INFORMATION
  Report Type: Spontaneous
  Country: US (occurrence: US)
  Receive Date: 20180822
  Receipt Date: 20180822
  Transmission Date: 20181010
  Serious: No
  Sender: FDA-Public Use
  Company Number: US-TARO-2017TAR00854

PATIENT
  Age: 53 Year
  Sex: Female
  Weight: 64.85 kg

DRUGS (2)
  1. METRONIDAZOLE GEL USP 0.75% [Suspect]
     Active Substance: METRONIDAZOLE
     Dosage: UNK, 2X/DAY
     Route: 061
     Dates: start: 201702, end: 201709
  2. METRONIDAZOLE GEL USP 0.75% [Suspect]
     Active Substance: METRONIDAZOLE
     Indication: ROSACEA
     Dosage: UNK, 2X/DAY
     Route: 061
     Dates: start: 2012

REACTIONS (2)
  - Application site pain [Recovered/Resolved]
  - Product quality issue [Recovered/Resolved]

NARRATIVE: CASE EVENT DATE: 201709
